FAERS Safety Report 25713927 (Version 1)
Quarter: 2025Q3

REPORT INFORMATION
  Report Type: Spontaneous
  Country: CA (occurrence: CA)
  Receive Date: 20250822
  Receipt Date: 20250822
  Transmission Date: 20251021
  Serious: Yes (Other)
  Sender: SANOFI AVENTIS
  Company Number: CA-SA-2025SA248741

PATIENT
  Age: 5 Year
  Sex: Male

DRUGS (1)
  1. DUPIXENT [Suspect]
     Active Substance: DUPILUMAB
     Dates: start: 20241216

REACTIONS (13)
  - Respiratory distress [Recovered/Resolved]
  - Respiration abnormal [Recovered/Resolved]
  - Somnolence [Unknown]
  - Nausea [Unknown]
  - Fatigue [Unknown]
  - Injection site plaque [Unknown]
  - Injection site warmth [Unknown]
  - Dyspnoea [Recovered/Resolved]
  - Asthma [Unknown]
  - Injection site rash [Recovered/Resolved]
  - Injection site oedema [Unknown]
  - Injection site erythema [Not Recovered/Not Resolved]
  - Injection site swelling [Unknown]

NARRATIVE: CASE EVENT DATE: 20241216
